FAERS Safety Report 6266507-X (Version None)
Quarter: 2009Q3

REPORT INFORMATION
  Report Type: 
  Country: None (occurrence: None)
  Receive Date: 20090710
  Receipt Date: 20090630
  Transmission Date: 20100115
  Serious: Yes (Hospitalization)
  Sender: FDA-Public Use
  Company Number: 2008-187930-NL

PATIENT
  Age: 42 Year
  Sex: Female
  Weight: 70.3 kg

DRUGS (1)
  1. NUVARING [Suspect]
     Dates: start: 20060701, end: 20061201

REACTIONS (9)
  - AMNESIA [None]
  - COGNITIVE DISORDER [None]
  - CONSTIPATION [None]
  - CONVULSION [None]
  - HAEMORRHAGIC CEREBRAL INFARCTION [None]
  - LOSS OF CONSCIOUSNESS [None]
  - MIGRAINE [None]
  - PYREXIA [None]
  - TRANSVERSE SINUS THROMBOSIS [None]
